FAERS Safety Report 7674698-9 (Version None)
Quarter: 2011Q3

REPORT INFORMATION
  Report Type: 
  Country: None (occurrence: None)
  Receive Date: 20110810
  Receipt Date: 20100928
  Transmission Date: 20111222
  Serious: Yes (Hospitalization)
  Sender: FDA-Public Use
  Company Number: US-GLAXOSMITHKLINE-A0884277A

PATIENT
  Age: 56 Year
  Sex: Female

DRUGS (7)
  1. CLONAZEPAM [Concomitant]
  2. CYTOMEL [Concomitant]
  3. LAMICTAL [Suspect]
     Indication: BIPOLAR DISORDER
     Route: 048
     Dates: start: 20080301, end: 20080505
  4. ESTRADIOL [Concomitant]
  5. CELEXA [Concomitant]
  6. LEVOXYL [Concomitant]
  7. REMERON [Concomitant]

REACTIONS (3)
  - XEROSIS [None]
  - STEVENS-JOHNSON SYNDROME [None]
  - INTERTRIGO [None]
